FAERS Safety Report 20037574 (Version 15)
Quarter: 2022Q4

REPORT INFORMATION
  Report Type: Report from Study
  Country: US (occurrence: US)
  Receive Date: 20211105
  Receipt Date: 20221209
  Transmission Date: 20230113
  Serious: Yes (Other)
  Sender: FDA-Public Use
  Company Number: US-GLAXOSMITHKLINE-US2021AMR161163

PATIENT
  Age: 56 Year
  Sex: Female

DRUGS (1)
  1. BELANTAMAB MAFODOTIN [Suspect]
     Active Substance: BELANTAMAB MAFODOTIN
     Indication: Product used for unknown indication
     Dosage: UNK
     Dates: start: 20210616

REACTIONS (9)
  - Visual acuity reduced [Recovered/Resolved]
  - Keratopathy [Recovering/Resolving]
  - Vision blurred [Unknown]
  - Visual impairment [Unknown]
  - Eye pruritus [Unknown]
  - Dry eye [Recovered/Resolved]
  - Diplopia [Unknown]
  - Eye irritation [Unknown]
  - Foreign body sensation in eyes [Recovered/Resolved]

NARRATIVE: CASE EVENT DATE: 20210801
